FAERS Safety Report 24609447 (Version 2)
Quarter: 2024Q4

REPORT INFORMATION
  Report Type: Spontaneous
  Country: TW (occurrence: TW)
  Receive Date: 20241112
  Receipt Date: 20241128
  Transmission Date: 20250115
  Serious: Yes (Other)
  Sender: KYOWA
  Company Number: TW-KYOWAKIRIN-2024KK024453

PATIENT

DRUGS (2)
  1. CRYSVITA [Suspect]
     Active Substance: BUROSUMAB-TWZA
     Indication: Hereditary hypophosphataemic rickets
     Dosage: FOR THE FIRST THREE TIMES, THE PATIENT TOOK IT EVERY 14 DAYS,A TOTAL OF 15 TIMES OF BUROSUMAB, 40ML
     Route: 058
     Dates: start: 20231101, end: 20241120
  2. PHOSPHORUS [Concomitant]
     Active Substance: PHOSPHORUS
     Indication: Hereditary hypophosphataemic rickets
     Dosage: UNK
     Route: 048

REACTIONS (13)
  - Starvation [Recovering/Resolving]
  - Pyrexia [Recovering/Resolving]
  - Noninfective gingivitis [Recovering/Resolving]
  - Hypertension [Recovering/Resolving]
  - Palpitations [Recovering/Resolving]
  - Upper crossed syndrome [Recovering/Resolving]
  - Uterine leiomyoma [Unknown]
  - Premenstrual syndrome [Unknown]
  - Haemoglobin decreased [Unknown]
  - Malaise [Recovering/Resolving]
  - Dizziness [Recovering/Resolving]
  - Headache [Recovering/Resolving]
  - Fatigue [Recovering/Resolving]

NARRATIVE: CASE EVENT DATE: 20231101
